FAERS Safety Report 8576508-4 (Version None)
Quarter: 2012Q3

REPORT INFORMATION
  Report Type: 
  Country: None (occurrence: None)
  Receive Date: 20120807
  Receipt Date: 20120803
  Transmission Date: 20120928
  Serious: No
  Sender: FDA-Public Use
  Company Number: US-PFIZER INC-2012142927

PATIENT
  Age: 69 Year
  Sex: Female
  Weight: 73.469 kg

DRUGS (1)
  1. PREMARIN [Suspect]
     Indication: HORMONE REPLACEMENT THERAPY
     Dosage: 0.625 MG/ML
     Route: 067
     Dates: start: 19880101

REACTIONS (3)
  - VULVOVAGINAL BURNING SENSATION [None]
  - PRODUCT CONTAMINATION [None]
  - VULVOVAGINAL PAIN [None]
